FAERS Safety Report 21308097 (Version 2)
Quarter: 2022Q3

REPORT INFORMATION
  Report Type: Spontaneous
  Country: GB (occurrence: GB)
  Receive Date: 20220908
  Receipt Date: 20220916
  Transmission Date: 20221027
  Serious: Yes (Other)
  Sender: FDA-Public Use
  Company Number: GB-VERTEX PHARMACEUTICALS-2022-001902

PATIENT
  Age: 24 Year
  Sex: Female
  Weight: 66 kg

DRUGS (13)
  1. ELEXACAFTOR\IVACAFTOR\TEZACAFTOR [Suspect]
     Active Substance: ELEXACAFTOR\IVACAFTOR\TEZACAFTOR
     Indication: Cystic fibrosis
     Dosage: 2 TABS IN THE MORNING
     Route: 048
     Dates: start: 20200430
  2. KALYDECO [Suspect]
     Active Substance: IVACAFTOR
     Indication: Cystic fibrosis
     Dosage: 1 TAB IN THE EVENING
     Route: 048
     Dates: start: 20200430
  3. COLOMYCIN [Concomitant]
     Indication: Cystic fibrosis
     Dosage: 2 MU
     Dates: start: 2015
  4. DORNASE ALFA [Concomitant]
     Active Substance: DORNASE ALFA
     Indication: Cystic fibrosis
     Dosage: 2.5 MG, QD
     Dates: start: 2015
  5. AZITHROMYCIN [Concomitant]
     Active Substance: AZITHROMYCIN
     Indication: Cystic fibrosis
     Dosage: 500MG ON MON,WED + FRI
     Dates: start: 2008
  6. FLUCLOXACILLIN [Concomitant]
     Active Substance: FLUCLOXACILLIN
     Indication: Cystic fibrosis
     Dosage: 1 GRAM, BID
     Dates: start: 1998
  7. CREON [Concomitant]
     Active Substance: PANCRELIPASE AMYLASE\PANCRELIPASE LIPASE\PANCRELIPASE PROTEASE
     Indication: Cystic fibrosis
     Dosage: APPROX 2-4 WITH MEALS
     Dates: start: 1998
  8. VITAMIN E [Concomitant]
     Active Substance: .ALPHA.-TOCOPHEROL
     Indication: Cystic fibrosis
     Dosage: 200 (1 CAPSULE), QD
     Dates: start: 1998
  9. OMEPRAZOLE [Concomitant]
     Active Substance: OMEPRAZOLE
     Indication: Gastrooesophageal reflux disease
     Dosage: 20 MG (1 CAP), QD
     Dates: start: 2015
  10. FOLIC ACID [Concomitant]
     Active Substance: FOLIC ACID
     Dosage: 1 TAB, QD
     Dates: start: 202201, end: 20220630
  11. ASPIRIN [Concomitant]
     Active Substance: ASPIRIN
     Dosage: 150 MG (1 TAB), QD
     Dates: start: 20220215, end: 20220630
  12. SODIUM CHLORIDE [Concomitant]
     Active Substance: SODIUM CHLORIDE
     Indication: Cystic fibrosis
     Dosage: 4 ML TWICE DAILY
     Dates: start: 2012
  13. FERROUS FUMARATE [Concomitant]
     Active Substance: FERROUS FUMARATE
     Indication: Iron deficiency
     Dosage: 210 MG ONCE DAILY
     Dates: start: 202205, end: 202207

REACTIONS (7)
  - Premature labour [Recovered/Resolved]
  - Vaginal discharge [Recovered/Resolved]
  - Foetal malpresentation [Recovered/Resolved]
  - Haemorrhage [Recovered/Resolved]
  - Pyrexia [Recovered/Resolved]
  - Exposure during pregnancy [Unknown]
  - Abdominal pain lower [Recovered/Resolved]

NARRATIVE: CASE EVENT DATE: 20210101
